FAERS Safety Report 21851142 (Version 1)
Quarter: 2023Q1

REPORT INFORMATION
  Report Type: Spontaneous
  Country: US (occurrence: None)
  Receive Date: 20230112
  Receipt Date: 20230112
  Transmission Date: 20230418
  Serious: No
  Sender: FDA-Public Use
  Company Number: US-ROCHE-3071340

PATIENT
  Sex: Female

DRUGS (1)
  1. RITUXAN HYCELA [Suspect]
     Active Substance: HYALURONIDASE (HUMAN RECOMBINANT)\RITUXIMAB
     Indication: Granulomatosis with polyangiitis
     Route: 042
     Dates: start: 20200625

REACTIONS (6)
  - Palmar-plantar erythrodysaesthesia syndrome [Unknown]
  - Pain [Unknown]
  - Fatigue [Unknown]
  - Stomatitis [Unknown]
  - Nausea [Unknown]
  - Vomiting [Unknown]
